FAERS Safety Report 11713486 (Version 1)
Quarter: 2015Q4

REPORT INFORMATION
  Report Type: Spontaneous
  Country: BR (occurrence: BR)
  Receive Date: 20151109
  Receipt Date: 20151109
  Transmission Date: 20160304
  Serious: Yes (Other)
  Sender: FDA-Public Use
  Company Number: BR-ALKEM-001313

PATIENT
  Age: 56 Year
  Sex: Male

DRUGS (4)
  1. ARIPIPRAZOLE. [Suspect]
     Active Substance: ARIPIPRAZOLE
     Indication: DEPRESSIVE SYMPTOM
  2. FLURAZEPAM/FLURAZEPAM HYDROCHLORIDE [Concomitant]
     Active Substance: FLURAZEPAM\FLURAZEPAM HYDROCHLORIDE
  3. LAMOTRIGINE. [Suspect]
     Active Substance: LAMOTRIGINE
     Indication: DEPRESSIVE SYMPTOM
  4. BUPROPION/BUPROPION HYDROCHLORIDE [Suspect]
     Active Substance: BUPROPION HYDROCHLORIDE
     Indication: DEPRESSIVE SYMPTOM

REACTIONS (8)
  - Psychomotor hyperactivity [Recovering/Resolving]
  - Suicidal ideation [Unknown]
  - Akathisia [Recovering/Resolving]
  - Restlessness [Recovering/Resolving]
  - Myalgia [Unknown]
  - Anxiety [Recovering/Resolving]
  - Fatigue [Unknown]
  - Insomnia [Recovering/Resolving]
